FAERS Safety Report 5429093-X (Version None)
Quarter: 2007Q3

REPORT INFORMATION
  Report Type: 
  Country: None (occurrence: None)
  Receive Date: 20070829
  Receipt Date: 20070820
  Transmission Date: 20080115
  Serious: Yes (Hospitalization, Other)
  Sender: FDA-Public Use
  Company Number: GB-JNJFOC-20070803944

PATIENT
  Sex: Female
  Weight: 39 kg

DRUGS (10)
  1. REMICADE [Suspect]
     Indication: RHEUMATOID ARTHRITIS
     Route: 042
  2. METHOTREXATE [Concomitant]
  3. PREDNISOLONE [Concomitant]
  4. AMITRIPTYLINE HCL [Concomitant]
  5. ASPIRIN [Concomitant]
  6. CALCICHEW D3 [Concomitant]
  7. FOLIC ACID [Concomitant]
  8. PARACETAMOL [Concomitant]
  9. RISEDRONATE SODIUM [Concomitant]
  10. TRAMADOL HCL [Concomitant]

REACTIONS (1)
  - SPINAL COMPRESSION FRACTURE [None]
